FAERS Safety Report 11169722 (Version 1)
Quarter: 2015Q2

REPORT INFORMATION
  Report Type: Spontaneous
  Country: US (occurrence: US)
  Receive Date: 20150606
  Receipt Date: 20150606
  Transmission Date: 20150821
  Serious: Yes (Death, Other)
  Sender: FDA-Public Use
  Company Number: US-BRISTOL-MYERS SQUIBB COMPANY-BMS-2015-035564

PATIENT
  Age: 60 Year
  Sex: Female

DRUGS (3)
  1. ETOPOSIDE. [Suspect]
     Active Substance: ETOPOSIDE
     Indication: HODGKIN^S DISEASE
     Dosage: 700 MG/M2, UNK
     Route: 065
  2. CARMUSTINE [Suspect]
     Active Substance: CARMUSTINE
     Indication: HODGKIN^S DISEASE
     Dosage: 300 MG/M2, TOTAL
     Route: 065
  3. CYTOXAN [Suspect]
     Active Substance: CYCLOPHOSPHAMIDE
     Indication: HODGKIN^S DISEASE
     Dosage: 1500 MG/M2, UNK
     Route: 065

REACTIONS (4)
  - Myocardial rupture [Fatal]
  - Coronary artery disease [Fatal]
  - Cardiac arrest [Fatal]
  - Acute myocardial infarction [Fatal]
